FAERS Safety Report 9894541 (Version 1)
Quarter: 2014Q1

REPORT INFORMATION
  Report Type: Spontaneous
  Country: NL (occurrence: NL)
  Receive Date: 20140213
  Receipt Date: 20140213
  Transmission Date: 20141002
  Serious: Yes (Death)
  Sender: FDA-Public Use
  Company Number: PHHY2014NL017579

PATIENT
  Sex: Female
  Weight: 54 kg

DRUGS (14)
  1. EXELON PATCH [Suspect]
     Dosage: 4.6 MG (PATCH 5), DAILY
     Route: 062
     Dates: start: 201312
  2. METOPROLOL TARTRATE [Concomitant]
     Dosage: 200 MG, QD
     Dates: start: 201312
  3. LANOXIN [Concomitant]
     Dosage: 0.062 MG, QD
     Dates: start: 201312
  4. NADROPARIN CALCIUM [Concomitant]
     Dosage: UNK UKN, UNK
  5. CALCIUM CARBONATE W/COLECALCIFEROL [Concomitant]
     Dosage: 1.25 G(800 IU), QD
  6. BUMETANIDE [Concomitant]
     Dosage: 1 MG, BID
  7. CITALOPRAM HYDROBROMIDE [Concomitant]
     Dosage: 10 MG, QD
  8. MELATONIN [Concomitant]
     Dosage: 1 MG, BID
  9. PRAVASTATIN SODIUM [Concomitant]
     Dosage: 40 MG, QD
  10. LORAZEPAM [Concomitant]
     Dosage: 1 MG, QD
  11. ESOMEPRAZOLE MAGNESIUM [Concomitant]
     Dosage: 20 MG, QOD
  12. PREDNISOLONE [Concomitant]
     Dosage: 20 MG, BID
  13. MACROGOL 3350 [Concomitant]
     Dosage: UNK UKN, DAILY
  14. SPIRIVA [Concomitant]
     Dosage: 18 UG, DAILY

REACTIONS (2)
  - Cardiac disorder [Fatal]
  - Death [Fatal]
